FAERS Safety Report 10429866 (Version 1)
Quarter: 2014Q3

REPORT INFORMATION
  Report Type: Spontaneous
  Country: US (occurrence: None)
  Receive Date: 20140807
  Receipt Date: 20140807
  Transmission Date: 20150326
  Serious: Yes (Other)
  Sender: FDA-Public Use
  Company Number: RB-56841-2013

PATIENT
  Age: 23 Year
  Sex: Female

DRUGS (1)
  1. GUAIFENESIN W/PSEUDOEPHEDRINE [Suspect]
     Active Substance: GUAIFENESIN\PSEUDOEPHEDRINE HYDROCHLORIDE
     Indication: PRODUCT USED FOR UNKNOWN INDICATION
     Dosage: TOOK 2 TABLETS AT MORNING, 2 TABLETS AT NIGHT. LAST TOOK PRODUCT ON 24-JUL-2013 ORAL)
     Route: 048
     Dates: start: 20130722

REACTIONS (3)
  - Hot flush [None]
  - Insomnia [None]
  - Feeling hot [None]

NARRATIVE: CASE EVENT DATE: 20130723
